FAERS Safety Report 24527263 (Version 1)
Quarter: 2024Q4

REPORT INFORMATION
  Report Type: Report from Study
  Country: US (occurrence: US)
  Receive Date: 20241021
  Receipt Date: 20241021
  Transmission Date: 20250115
  Serious: No
  Sender: ROCHE
  Company Number: US-ROCHE-3531175

PATIENT
  Age: 78 Year
  Sex: Female

DRUGS (1)
  1. COTELLIC [Suspect]
     Active Substance: COBIMETINIB
     Indication: Histiocytic sarcoma
     Dosage: TAKE 3 TABLET(S) BY MOUTH (60MG) DAILY ON DAYS 1-21 EVERY 28 DAY (S)? FREQUENCY TEXT:DAILY ON DAYS 1
     Route: 048

REACTIONS (2)
  - Off label use [Unknown]
  - Hypoacusis [Unknown]
